FAERS Safety Report 11346966 (Version 3)
Quarter: 2016Q2

REPORT INFORMATION
  Report Type: Spontaneous
  Country: US (occurrence: US)
  Receive Date: 20150806
  Receipt Date: 20160628
  Transmission Date: 20160815
  Serious: Yes (Hospitalization, Other)
  Sender: FDA-Public Use
  Company Number: US-BAYER-2015-395066

PATIENT
  Age: 32 Year
  Sex: Female

DRUGS (11)
  1. FENTANYL. [Concomitant]
     Active Substance: FENTANYL
  2. VITAMIN K [Concomitant]
     Active Substance: PHYTONADIONE
  3. SUCCINYLCHOLINE CHLORIDE. [Concomitant]
     Active Substance: SUCCINYLCHOLINE CHLORIDE
  4. ONDANSETRON [Concomitant]
     Active Substance: ONDANSETRON
  5. MIRENA [Suspect]
     Active Substance: LEVONORGESTREL
     Indication: CONTRACEPTION
     Dosage: 20 MCG/24HR, CONT
     Route: 015
     Dates: start: 20121219, end: 20140418
  6. ACYCLOVIR [ACICLOVIR SODIUM] [Concomitant]
     Indication: HERPES ZOSTER
     Dosage: UNK
     Dates: start: 2000
  7. METHERGINE [Concomitant]
     Active Substance: METHYLERGONOVINE MALEATE
  8. MIDAZOLAM [Concomitant]
     Active Substance: MIDAZOLAM\MIDAZOLAM HYDROCHLORIDE
  9. ERYTHROMYCIN. [Concomitant]
     Active Substance: ERYTHROMYCIN
  10. HEPATITIS B IG [Concomitant]
  11. LIDOCAINE. [Concomitant]
     Active Substance: LIDOCAINE

REACTIONS (8)
  - Device failure [None]
  - Abortion spontaneous [None]
  - Pregnancy with contraceptive device [None]
  - Drug ineffective [None]
  - Embedded device [None]
  - Device difficult to use [None]
  - Genital haemorrhage [None]
  - Device issue [None]

NARRATIVE: CASE EVENT DATE: 2013
